FAERS Safety Report 18780855 (Version 1)
Quarter: 2021Q1

REPORT INFORMATION
  Report Type: Spontaneous
  Country: US (occurrence: US)
  Receive Date: 20210123
  Receipt Date: 20210123
  Transmission Date: 20210419
  Serious: No
  Sender: FDA-Public Use
  Company Number: None

PATIENT
  Age: 71 Year
  Sex: Male
  Weight: 79.43 kg

DRUGS (22)
  1. PREGABALIN 50MG [Concomitant]
     Active Substance: PREGABALIN
  2. METAMUCIL PLUS CALCIUM [Concomitant]
  3. ROSUVASTATIN 40MG [Concomitant]
     Active Substance: ROSUVASTATIN
  4. DILTIAZEM ER BEADS 300MG [Concomitant]
  5. POTASSIUM CHLORIDE ER 20MEQ [Concomitant]
  6. MIRTAZAPINE 15MG [Concomitant]
     Active Substance: MIRTAZAPINE
  7. LEVOTHYROXINE 50MCG [Concomitant]
     Active Substance: LEVOTHYROXINE
  8. TAMSULOSIN 0.4MG [Concomitant]
     Active Substance: TAMSULOSIN
  9. XARELTO [Concomitant]
     Active Substance: RIVAROXABAN
  10. ERLOTINIB [Suspect]
     Active Substance: ERLOTINIB
     Indication: LUNG NEOPLASM MALIGNANT
     Route: 048
     Dates: start: 20201021
  11. MIRALAX 17GM [Concomitant]
  12. ALLOPURINOL 100MG [Concomitant]
     Active Substance: ALLOPURINOL
  13. COLACE [Concomitant]
     Active Substance: DOCUSATE SODIUM
  14. METOPROLOL SUCCINATE ER [Concomitant]
     Active Substance: METOPROLOL SUCCINATE
  15. NYSTATIN 100000 UNIT/GM [Concomitant]
  16. CARDIZEM CD 360MG [Concomitant]
  17. PROCHLORPERAZINE 10MG [Concomitant]
  18. TRAMADOL ER 100MG [Concomitant]
     Active Substance: TRAMADOL HYDROCHLORIDE
  19. OMEPRAZOLE 20MG [Concomitant]
     Active Substance: OMEPRAZOLE
  20. CIPROFLOXACIN 250MG [Concomitant]
     Active Substance: CIPROFLOXACIN
  21. NORCO [Concomitant]
     Active Substance: ACETAMINOPHEN\HYDROCODONE BITARTRATE
  22. ONDANSETRON 8MG [Concomitant]
     Active Substance: ONDANSETRON

REACTIONS (4)
  - Dry eye [None]
  - Diarrhoea [None]
  - Dehydration [None]
  - Stomatitis [None]

NARRATIVE: CASE EVENT DATE: 20210122
